FAERS Safety Report 11445311 (Version 1)
Quarter: 2015Q3

REPORT INFORMATION
  Report Type: Spontaneous
  Country: FR (occurrence: FR)
  Receive Date: 20150902
  Receipt Date: 20150902
  Transmission Date: 20151125
  Serious: Yes (Hospitalization)
  Sender: FDA-Public Use
  Company Number: FR-JNJFOC-20150900605

PATIENT
  Age: 59 Year
  Sex: Female

DRUGS (21)
  1. LERCAN [Concomitant]
     Active Substance: LERCANIDIPINE
     Route: 065
  2. ZYMADUO [Concomitant]
     Route: 065
  3. INEXIUM [Concomitant]
     Active Substance: ESOMEPRAZOLE
     Route: 065
  4. NOVORAPID [Concomitant]
     Active Substance: INSULIN ASPART
     Route: 065
  5. METFORMINE [Concomitant]
     Active Substance: METFORMIN HYDROCHLORIDE
     Route: 065
  6. FLUOXETINE [Concomitant]
     Active Substance: FLUOXETINE\FLUOXETINE HYDROCHLORIDE
     Route: 065
  7. XARELTO [Suspect]
     Active Substance: RIVAROXABAN
     Indication: PRODUCT USED FOR UNKNOWN INDICATION
     Route: 048
     Dates: end: 20150629
  8. VENTOLINE [Concomitant]
     Active Substance: ALBUTEROL
     Dosage: 1 TO 2 X 3 TO 4/DAY
     Route: 065
  9. SINGULAIR [Concomitant]
     Active Substance: MONTELUKAST SODIUM
     Route: 065
  10. TRANSIPEG FORTE [Concomitant]
     Route: 065
  11. INNOVAIR [Concomitant]
     Active Substance: BECLOMETHASONE DIPROPIONATE\FORMOTEROL
  12. LANTUS [Concomitant]
     Active Substance: INSULIN GLARGINE
     Route: 065
  13. PROCORALAN [Concomitant]
     Active Substance: IVABRADINE
     Route: 065
  14. NASONEX [Concomitant]
     Active Substance: MOMETASONE FUROATE
     Route: 065
  15. VICTOZA [Concomitant]
     Active Substance: LIRAGLUTIDE
     Route: 065
  16. COLCHICINE. [Concomitant]
     Active Substance: COLCHICINE
     Route: 065
  17. PARACETAMOL [Concomitant]
     Active Substance: ACETAMINOPHEN
     Route: 065
  18. PENTASA [Concomitant]
     Active Substance: MESALAMINE
     Route: 065
  19. ESIDREX [Concomitant]
     Active Substance: HYDROCHLOROTHIAZIDE
     Dosage: 25 UNK, 0.5/DAY
     Route: 065
  20. PRAVASTATIN [Concomitant]
     Active Substance: PRAVASTATIN\PRAVASTATIN SODIUM
  21. SPIRIVA [Concomitant]
     Active Substance: TIOTROPIUM BROMIDE MONOHYDRATE
     Route: 065

REACTIONS (4)
  - Headache [Unknown]
  - Vomiting [Unknown]
  - Hypertension [Unknown]
  - Subdural haematoma [Unknown]

NARRATIVE: CASE EVENT DATE: 20150627
